FAERS Safety Report 8469963-1 (Version None)
Quarter: 2012Q2

REPORT INFORMATION
  Report Type: 
  Country: None (occurrence: None)
  Receive Date: 20120627
  Receipt Date: 20120619
  Transmission Date: 20120825
  Serious: No
  Sender: FDA-Public Use
  Company Number: US-BIOGENIDEC-2012BI015937

PATIENT
  Sex: Female

DRUGS (1)
  1. TYSABRI [Suspect]
     Indication: MULTIPLE SCLEROSIS
     Route: 042
     Dates: start: 20120118

REACTIONS (8)
  - PAIN IN EXTREMITY [None]
  - CHOKING [None]
  - SWOLLEN TONGUE [None]
  - NERVE INJURY [None]
  - HYPERSENSITIVITY [None]
  - BURNING SENSATION [None]
  - GLOSSODYNIA [None]
  - TONGUE PRURITUS [None]
